FAERS Safety Report 8963118 (Version 1)
Quarter: 2012Q4

REPORT INFORMATION
  Report Type: 
  Country: US (occurrence: US)
  Receive Date: 20121213
  Receipt Date: 20121213
  Transmission Date: 20130627
  Serious: No
  Sender: FDA-Public Use
  Company Number: US-VERTEX PHARMACEUTICALS INC.-2012-025773

PATIENT
  Sex: Female
  Weight: 56 kg

DRUGS (4)
  1. INCIVEK [Suspect]
     Indication: HEPATITIS C
     Dosage: 750 mg, tid
     Route: 048
     Dates: start: 20120828
  2. INCIVEK [Suspect]
     Dosage: 750 mg, tid
     Route: 048
  3. PEGASYS [Suspect]
     Indication: HEPATITIS C
     Dosage: 90 ?g, qw
     Route: 058
     Dates: start: 20120828
  4. RIBAVIRIN [Suspect]
     Indication: HEPATITIS C
     Dosage: 400 mg, bid
     Route: 048
     Dates: start: 20120828

REACTIONS (4)
  - Drug dose omission [Recovered/Resolved]
  - Pain [Not Recovered/Not Resolved]
  - Rash pruritic [Not Recovered/Not Resolved]
  - Skin burning sensation [Not Recovered/Not Resolved]
